FAERS Safety Report 8025798-5 (Version None)
Quarter: 2012Q1

REPORT INFORMATION
  Report Type: 
  Country: None (occurrence: None)
  Receive Date: 20120105
  Receipt Date: 20110820
  Transmission Date: 20120608
  Serious: No
  Sender: FDA-Public Use
  Company Number: US-ABBOTT-11P-163-0848649-00

PATIENT
  Sex: Female

DRUGS (2)
  1. SYNTHROID [Suspect]
     Indication: PRODUCT USED FOR UNKNOWN INDICATION
  2. SYNTHROID [Suspect]
     Indication: PRODUCT USED FOR UNKNOWN INDICATION

REACTIONS (8)
  - STRESS [None]
  - SLEEP DISORDER [None]
  - ADRENAL DISORDER [None]
  - DRUG PRESCRIBING ERROR [None]
  - ANXIETY [None]
  - PANIC ATTACK [None]
  - POLLAKIURIA [None]
  - FEELING ABNORMAL [None]
